FAERS Safety Report 5159152-0 (Version None)
Quarter: 2006Q4

REPORT INFORMATION
  Report Type: 
  Country: None (occurrence: None)
  Receive Date: 20061117
  Receipt Date: 20061031
  Transmission Date: 20070319
  Serious: Yes (Hospitalization)
  Sender: FDA-Public Use
  Company Number: 226400

PATIENT
  Age: 65 Year
  Sex: Female

DRUGS (7)
  1. AVASTIN [Suspect]
     Indication: COLORECTAL CANCER METASTATIC
     Dosage: 450 MG, Q3W, INTRAVENOUS
     Route: 042
     Dates: start: 20050902
  2. CAPECITABINE (CAPECITABINE) [Suspect]
     Indication: COLORECTAL CANCER METASTATIC
     Dosage: 3000 MG, QD, ORAL
     Route: 048
     Dates: start: 20050902, end: 20060525
  3. MITOMYCINE C (MITOMYCIN) [Suspect]
     Indication: COLORECTAL CANCER METASTATIC
  4. ASPIRIN [Concomitant]
  5. COLOXYL WITH SENNA (DOCUSATE SODIUM, ) [Concomitant]
  6. LACTULOSE [Concomitant]
  7. ERGOCALCIFEROL [Concomitant]

REACTIONS (5)
  - BLOOD ALBUMIN INCREASED [None]
  - BLOOD CREATININE INCREASED [None]
  - CREATININE RENAL CLEARANCE DECREASED [None]
  - PALMAR-PLANTAR ERYTHRODYSAESTHESIA SYNDROME [None]
  - PROTEINURIA [None]
